FAERS Safety Report 5507802-9 (Version None)
Quarter: 2007Q4

REPORT INFORMATION
  Report Type: 
  Country: None (occurrence: None)
  Receive Date: 20071106
  Receipt Date: 20071025
  Transmission Date: 20080405
  Serious: Yes (Other)
  Sender: FDA-Public Use
  Company Number: PT-MERCK-0710PRT00008

PATIENT
  Sex: Female

DRUGS (3)
  1. EMEND [Suspect]
     Indication: VOMITING
     Route: 048
  2. EMEND [Suspect]
     Indication: NAUSEA
     Route: 048
  3. CISPLATIN [Concomitant]
     Indication: OVARIAN NEOPLASM
     Route: 065

REACTIONS (2)
  - MOVEMENT DISORDER [None]
  - PARAESTHESIA [None]
